FAERS Safety Report 10776466 (Version 1)
Quarter: 2015Q1

REPORT INFORMATION
  Report Type: Spontaneous
  Country: US (occurrence: None)
  Receive Date: 20150205
  Receipt Date: 20150205
  Transmission Date: 20150721
  Serious: Yes (Life-Threatening, Hospitalization)
  Sender: FDA-Public Use
  Company Number: None

PATIENT
  Age: 66 Year
  Sex: Female
  Weight: 103.42 kg

DRUGS (4)
  1. AZITHROMYCIN [Suspect]
     Active Substance: AZITHROMYCIN ANHYDROUS
     Indication: BRONCHITIS
     Dates: start: 20150126, end: 20150130
  2. CANDESARTAN/HYDROCHLOROTHIAZIDE 32MG/12.5 MG [Concomitant]
  3. FLECAINIDE 150 MG NOT AVAILABLE [Concomitant]
     Active Substance: FLECAINIDE
  4. FUROSEMIDE 20 MG [Concomitant]
     Active Substance: FUROSEMIDE

REACTIONS (7)
  - Ventricular fibrillation [None]
  - Cardiac arrest [None]
  - Electrocardiogram QT prolonged [None]
  - Hypokalaemia [None]
  - Drug interaction [None]
  - Wheezing [None]
  - Palpitations [None]

NARRATIVE: CASE EVENT DATE: 20150201
